FAERS Safety Report 14649629 (Version 2)
Quarter: 2018Q1

REPORT INFORMATION
  Report Type: Spontaneous
  Country: JP (occurrence: JP)
  Receive Date: 20180316
  Receipt Date: 20180320
  Transmission Date: 20180509
  Serious: Yes (Other)
  Sender: FDA-Public Use
  Company Number: JP-GILEAD-2018-0325952

PATIENT
  Age: 27 Year
  Sex: Male

DRUGS (5)
  1. TRUVADA [Suspect]
     Active Substance: EMTRICITABINE\TENOFOVIR DISOPROXIL FUMARATE
     Indication: HIV INFECTION
     Dosage: UNK
     Route: 048
  2. PREZISTA [Concomitant]
     Active Substance: DARUNAVIR ETHANOLATE
     Route: 048
  3. NORVIR [Concomitant]
     Active Substance: RITONAVIR
     Route: 048
  4. NORVIR [Concomitant]
     Active Substance: RITONAVIR
     Route: 048
  5. PREZISTA [Concomitant]
     Active Substance: DARUNAVIR ETHANOLATE
     Route: 048

REACTIONS (1)
  - Hepatitis A [Unknown]
